FAERS Safety Report 13385984 (Version 2)
Quarter: 2019Q1

REPORT INFORMATION
  Report Type: Spontaneous
  Country: FR (occurrence: FR)
  Receive Date: 20170330
  Receipt Date: 20190202
  Transmission Date: 20190417
  Serious: Yes (Hospitalization)
  Sender: FDA-Public Use
  Company Number: FR-BIOGEN-2017BI00379112

PATIENT
  Age: 34 Year
  Sex: Female
  Weight: 57 kg

DRUGS (1)
  1. TYSABRI [Suspect]
     Active Substance: NATALIZUMAB
     Indication: MULTIPLE SCLEROSIS
     Route: 042
     Dates: start: 20120301, end: 20121201

REACTIONS (2)
  - Herpes zoster cutaneous disseminated [Recovered/Resolved with Sequelae]
  - Meningoradiculitis [Recovered/Resolved with Sequelae]

NARRATIVE: CASE EVENT DATE: 20130101
